FAERS Safety Report 5334061-2 (Version None)
Quarter: 2007Q2

REPORT INFORMATION
  Report Type: 
  Country: None (occurrence: None)
  Receive Date: 20070524
  Receipt Date: 20070515
  Transmission Date: 20071010
  Serious: Yes (Other)
  Sender: FDA-Public Use
  Company Number: US-PFIZER INC-2007040295

PATIENT
  Sex: Female
  Weight: 69.9 kg

DRUGS (2)
  1. BEXTRA [Suspect]
     Indication: EPICONDYLITIS
     Route: 048
     Dates: start: 20031001, end: 20050201
  2. BEXTRA [Suspect]
     Indication: ARTHRITIS

REACTIONS (1)
  - RASH [None]
